FAERS Safety Report 4798966-3 (Version None)
Quarter: 2005Q4

REPORT INFORMATION
  Report Type: 
  Country: None (occurrence: None)
  Receive Date: 20051011
  Receipt Date: 20050928
  Transmission Date: 20060501
  Serious: Yes (Hospitalization, Other)
  Sender: FDA-Public Use
  Company Number: 2005105820

PATIENT
  Age: 26 Year
  Sex: Male

DRUGS (3)
  1. MINOXIDIL [Suspect]
     Indication: ALOPECIA
     Dosage: TOPICAL
     Route: 061
     Dates: start: 20030101, end: 20050601
  2. SUMATRIPTAN SUCCINATE [Concomitant]
  3. SALBUTAMOL (SALBUTAMOL) [Concomitant]

REACTIONS (4)
  - ASTIGMATISM [None]
  - CHROMATOPSIA [None]
  - COMPLEMENT FACTOR INCREASED [None]
  - OPTIC NEURITIS [None]
